FAERS Safety Report 8450309-X (Version None)
Quarter: 2012Q2

REPORT INFORMATION
  Report Type: 
  Country: None (occurrence: None)
  Receive Date: 20120620
  Receipt Date: 20120608
  Transmission Date: 20120825
  Serious: Yes (Life-Threatening, Hospitalization)
  Sender: FDA-Public Use
  Company Number: TR-MILLENNIUM PHARMACEUTICALS, INC.-2012-03743

PATIENT

DRUGS (12)
  1. DEXAMETHASONE [Concomitant]
     Dosage: UNK
     Dates: start: 20120322
  2. CEFTRIAXONE [Concomitant]
     Dosage: UNK
     Dates: start: 20120226
  3. TIOTROPIUM BROMIDE [Concomitant]
     Dosage: UNK
     Dates: start: 20120305
  4. MOXIFLOXACIN [Concomitant]
     Dosage: UNK
     Dates: start: 20120305
  5. TAZOBACTAM [Concomitant]
     Dosage: UNK
     Dates: start: 20120305
  6. METHYLPREDNISOLONE [Concomitant]
     Dosage: UNK
     Dates: start: 20120305, end: 20120309
  7. VELCADE [Suspect]
     Dosage: UNK
     Dates: start: 20120322
  8. ZOMETA [Concomitant]
     Dosage: UNK
     Dates: start: 20110914
  9. FORMOTEROL FUMARATE [Concomitant]
     Dosage: UNK
     Dates: start: 20120305
  10. VELCADE [Suspect]
     Indication: MULTIPLE MYELOMA
     Dosage: UNK
     Route: 042
     Dates: start: 20111222, end: 20120312
  11. DEXAMETHASONE [Concomitant]
     Indication: MULTIPLE MYELOMA
     Dosage: UNK
     Dates: start: 20111222, end: 20111222
  12. CLARITHROMYCIN [Concomitant]
     Dosage: UNK
     Dates: start: 20120226

REACTIONS (1)
  - ASTHMA [None]
